FAERS Safety Report 23808314 (Version 1)
Quarter: 2024Q2

REPORT INFORMATION
  Report Type: Spontaneous
  Country: US (occurrence: None)
  Receive Date: 20240501
  Receipt Date: 20240501
  Transmission Date: 20240716
  Serious: Yes (Hospitalization)
  Sender: FDA-Public Use
  Company Number: None

PATIENT
  Age: 78 Year
  Sex: Male
  Weight: 80 kg

DRUGS (1)
  1. LOSARTAN [Suspect]
     Active Substance: LOSARTAN
     Indication: Hypertension
     Dosage: OTHER QUANTITY : 1 TAB;?FREQUENCY : DAILY;?
     Route: 048
     Dates: start: 20231111, end: 20231212

REACTIONS (4)
  - Blood creatinine increased [None]
  - Hyperkalaemia [None]
  - Hyponatraemia [None]
  - Therapy interrupted [None]

NARRATIVE: CASE EVENT DATE: 20231204
